FAERS Safety Report 7524116-6 (Version None)
Quarter: 2011Q2

REPORT INFORMATION
  Report Type: 
  Country: None (occurrence: None)
  Receive Date: 20110606
  Receipt Date: 20110531
  Transmission Date: 20111010
  Serious: Yes (Hospitalization)
  Sender: FDA-Public Use
  Company Number: US-BIOGENIDEC-2011BI017594

PATIENT
  Age: 51 Year
  Sex: Female

DRUGS (1)
  1. AVONEX [Suspect]
     Indication: MULTIPLE SCLEROSIS
     Route: 030
     Dates: start: 20090927

REACTIONS (9)
  - LOSS OF CONSCIOUSNESS [None]
  - PRESYNCOPE [None]
  - BACK PAIN [None]
  - BLOOD PRESSURE INCREASED [None]
  - TINNITUS [None]
  - VERTIGO [None]
  - ARTHRALGIA [None]
  - HYPOACUSIS [None]
  - ARTHRITIS [None]
